FAERS Safety Report 16420277 (Version 2)
Quarter: 2019Q2

REPORT INFORMATION
  Report Type: Spontaneous
  Country: US (occurrence: US)
  Receive Date: 20190612
  Receipt Date: 20190620
  Transmission Date: 20190711
  Serious: No
  Sender: FDA-Public Use
  Company Number: US-PFIZER INC-2019252022

PATIENT
  Age: 58 Year
  Sex: Female

DRUGS (2)
  1. IBRANCE [Suspect]
     Active Substance: PALBOCICLIB
     Indication: BREAST CANCER
     Dosage: 125 MG, CYCLIC(TAKE 1 CAPSULE BY MOUTH DAILY FOR 21 DAYS, THEN 7 DAYS OFF )
     Route: 048
     Dates: start: 20190531
  2. IBRANCE [Suspect]
     Active Substance: PALBOCICLIB
     Dosage: 125 MG, DAILY
     Dates: start: 20190604

REACTIONS (8)
  - Nausea [Unknown]
  - Dizziness [Unknown]
  - Chills [Unknown]
  - Fatigue [Unknown]
  - Abdominal pain [Unknown]
  - Bone pain [Unknown]
  - Insomnia [Unknown]
  - Decreased appetite [Unknown]
